FAERS Safety Report 5066873-7 (Version None)
Quarter: 2006Q3

REPORT INFORMATION
  Report Type: 
  Country: None (occurrence: None)
  Receive Date: 20060724
  Receipt Date: 20050930
  Transmission Date: 20061208
  Serious: Yes (Hospitalization)
  Sender: FDA-Public Use
  Company Number: 6017612

PATIENT
  Age: 62 Year
  Sex: Female

DRUGS (5)
  1. LEVOTHYROXINE SODIUM [Suspect]
     Indication: DRUG USE FOR UNKNOWN INDICATION
     Dosage: 100,0000 MCG (100 MCG, 1 IN 1 D), ORAL
     Route: 048
  2. EPIVIR [Suspect]
     Dosage: 1,00 DOSAGE FORMS (1 DOSAGE FORMS, 1 IN 1 D), ORAL
     Route: 048
     Dates: start: 19980219
  3. ZERIT [Suspect]
     Indication: HIV INFECTION
     Dosage: 1,00 DOSAGE FORMS (1 DOSAGE FORMS, 1 IN 1 D), ORA
     Route: 048
     Dates: start: 19980219
  4. SUSTIVA [Suspect]
     Indication: HIV INFECTION
     Dosage: 1,00 DOSAGE FORMS (1 DOSAGE FORMS, 1 IN 1 D), ORAL
     Route: 048
     Dates: start: 19990408
  5. BACTRIM [Suspect]
     Indication: DRUG USE FOR UNKNOWN INDICATION
     Dosage: 1,00 DOSAGE FORMS (1 DOSAGE FORMS, 1 IN 1 D), ORAL
     Route: 048

REACTIONS (1)
  - CLONIC CONVULSION [None]
